FAERS Safety Report 9105751 (Version 1)
Quarter: 2013Q1

REPORT INFORMATION
  Report Type: Spontaneous
  Country: PT (occurrence: PT)
  Receive Date: 20130220
  Receipt Date: 20130220
  Transmission Date: 20140127
  Serious: Yes (Other)
  Sender: FDA-Public Use
  Company Number: PT-ABBOTT-13P-130-1053016-00

PATIENT
  Age: 35 Year
  Sex: Female

DRUGS (5)
  1. PROGESTERONE [Suspect]
     Indication: PRODUCT USED FOR UNKNOWN INDICATION
     Route: 067
  2. PUREGON [Suspect]
     Indication: OVULATION INDUCTION
     Dosage: 2ND CYCLE WITH 01, 50 IU
     Route: 065
  3. PUREGON [Suspect]
     Dosage: 1ST CYCLE OF IUI WITH 01, 75 IU
     Route: 065
  4. GONADOTROPIN CHORIONIC HUMAN [Suspect]
     Indication: PRODUCT USED FOR UNKNOWN INDICATION
     Dosage: 10000 IU TO 11 DAYS
     Route: 065
  5. ORGALUTRAN [Suspect]
     Indication: OVULATION INDUCTION
     Dosage: 1ST CYCLE OF IUI WITH 01 0.25 MG
     Route: 065

REACTIONS (2)
  - Abortion spontaneous [Unknown]
  - Exposure during pregnancy [None]
